FAERS Safety Report 7367551-1 (Version None)
Quarter: 2011Q1

REPORT INFORMATION
  Report Type: 
  Country: None (occurrence: None)
  Receive Date: 20110322
  Receipt Date: 20110317
  Transmission Date: 20110831
  Serious: Yes (Hospitalization)
  Sender: FDA-Public Use
  Company Number: DE-ABBOTT-11P-062-0712785-00

PATIENT
  Sex: Female

DRUGS (3)
  1. HUMIRA [Suspect]
     Indication: RHEUMATOID ARTHRITIS
     Route: 058
     Dates: start: 20100615, end: 20110115
  2. METHOTREXAT [Concomitant]
     Indication: RHEUMATOID ARTHRITIS
  3. ARAVA [Concomitant]
     Indication: RHEUMATOID ARTHRITIS

REACTIONS (2)
  - NASOPHARYNGITIS [None]
  - LIGAMENT LAXITY [None]
